FAERS Safety Report 24330920 (Version 1)
Quarter: 2024Q3

REPORT INFORMATION
  Report Type: Spontaneous
  Country: CA (occurrence: CA)
  Receive Date: 20240918
  Receipt Date: 20240918
  Transmission Date: 20241016
  Serious: Yes (Other)
  Sender: CELLTRION
  Company Number: CA-CELLTRION INC.-2024CA021159

PATIENT

DRUGS (4)
  1. INFLIXIMAB [Suspect]
     Active Substance: INFLIXIMAB
     Indication: Crohn^s disease
     Dosage: 120 MG, Q2WEEKS
     Route: 058
     Dates: start: 20240607
  2. INFLIXIMAB [Suspect]
     Active Substance: INFLIXIMAB
     Dosage: 120 MG, Q2WEEKS
     Route: 058
     Dates: start: 20240816
  3. PANTOPRAZOLE SODIUM [Concomitant]
     Active Substance: PANTOPRAZOLE SODIUM
     Dosage: OD
  4. WELLBUTRIN [Concomitant]
     Active Substance: BUPROPION HYDROCHLORIDE
     Dosage: OD

REACTIONS (6)
  - Crohn^s disease [Unknown]
  - Cyst rupture [Unknown]
  - Infected cyst [Unknown]
  - Diarrhoea [Unknown]
  - Abdominal pain upper [Unknown]
  - Therapeutic response shortened [Unknown]
